FAERS Safety Report 17273101 (Version 3)
Quarter: 2020Q1

REPORT INFORMATION
  Report Type: Report from Study
  Country: US (occurrence: US)
  Receive Date: 20200115
  Receipt Date: 20200305
  Transmission Date: 20200409
  Serious: Yes (Other)
  Sender: FDA-Public Use
  Company Number: US-MYLANLABS-2020M1004199

PATIENT
  Sex: Female
  Weight: 73 kg

DRUGS (3)
  1. MELOXICAM. [Concomitant]
     Active Substance: MELOXICAM
  2. DIAZEPAM. [Concomitant]
     Active Substance: DIAZEPAM
  3. GLATIRAMER ACETATE INJECTION [Suspect]
     Active Substance: GLATIRAMER ACETATE
     Indication: MULTIPLE SCLEROSIS
     Dosage: 40 MILLIGRAM, 3XW
     Dates: start: 20190901

REACTIONS (11)
  - Limb discomfort [Recovered/Resolved]
  - Back disorder [Recovering/Resolving]
  - Malaise [Not Recovered/Not Resolved]
  - Gastrointestinal hypomotility [Recovering/Resolving]
  - Therapeutic product effect incomplete [Unknown]
  - Paraesthesia [Recovered/Resolved]
  - Headache [Recovering/Resolving]
  - Fatigue [Not Recovered/Not Resolved]
  - Pollakiuria [Recovering/Resolving]
  - Night sweats [Recovered/Resolved]
  - Back pain [Recovering/Resolving]

NARRATIVE: CASE EVENT DATE: 2019
